FAERS Safety Report 11861086 (Version 1)
Quarter: 2015Q4

REPORT INFORMATION
  Report Type: Spontaneous
  Country: US (occurrence: US)
  Receive Date: 20151222
  Receipt Date: 20151222
  Transmission Date: 20160305
  Serious: Yes (Death, Other)
  Sender: FDA-Public Use
  Company Number: US-BRISTOL-MYERS SQUIBB COMPANY-BMS-2015-086430

PATIENT
  Sex: Male

DRUGS (1)
  1. HYDROXYUREA. [Suspect]
     Active Substance: HYDROXYUREA
     Indication: THROMBOCYTOSIS
     Dosage: 1200 MG, QD
     Route: 048

REACTIONS (1)
  - Death [Fatal]
